FAERS Safety Report 11671848 (Version 1)
Quarter: 2015Q4

REPORT INFORMATION
  Report Type: Spontaneous
  Country: US (occurrence: None)
  Receive Date: 20151026
  Receipt Date: 20151026
  Transmission Date: 20160304
  Serious: Yes (Other)
  Sender: FDA-Public Use
  Company Number: 2015-PEL-000601

PATIENT
  Age: 73 Year
  Sex: Male
  Weight: 77 kg

DRUGS (5)
  1. FENTANYL. [Concomitant]
     Active Substance: FENTANYL
  2. ISOFLURANE, USP (HUMAN) (ISOFLURANE) INJECTION, 100ML [Suspect]
     Active Substance: ISOFLURANE
     Indication: MAINTENANCE OF ANAESTHESIA
     Route: 055
  3. NITROUS OXIDE (NITROUS OXIDE) [Suspect]
     Active Substance: NITROUS OXIDE
     Indication: MAINTENANCE OF ANAESTHESIA
     Route: 055
  4. PROPOFOL (PROPOFOL) [Suspect]
     Active Substance: PROPOFOL
     Indication: INDUCTION OF ANAESTHESIA
     Route: 042
  5. VECURONIUM [Concomitant]
     Active Substance: VECURONIUM BROMIDE

REACTIONS (5)
  - Hypotension [None]
  - Aggression [None]
  - Hemiparesis [None]
  - Ischaemic stroke [None]
  - Hypovolaemia [None]
